FAERS Safety Report 18174284 (Version 1)
Quarter: 2020Q3

REPORT INFORMATION
  Report Type: Spontaneous
  Country: US (occurrence: US)
  Receive Date: 20200820
  Receipt Date: 20200820
  Transmission Date: 20201103
  Serious: Yes (Other)
  Sender: FDA-Public Use
  Company Number: None

PATIENT
  Age: 59 Year
  Sex: Female
  Weight: 80.55 kg

DRUGS (9)
  1. STERIODS [Concomitant]
     Active Substance: UNSPECIFIED INGREDIENT
  2. BETA BLOCKERS [Concomitant]
     Active Substance: UNSPECIFIED INGREDIENT
  3. AMOXICIIAN CLAV [Concomitant]
  4. ADRENAL CORTEX EXTRACT [Concomitant]
  5. NP THYROID [Concomitant]
     Active Substance: LEVOTHYROXINE\LIOTHYRONINE
  6. NAC [Concomitant]
  7. CIPRODEX [Suspect]
     Active Substance: CIPROFLOXACIN HYDROCHLORIDE\DEXAMETHASONE
     Indication: EAR INFECTION
     Dosage: ?          QUANTITY:4 DROP(S);?
     Route: 001
     Dates: start: 20200810, end: 20200817
  8. VIT D3 + K2 [Concomitant]
  9. C [Concomitant]

REACTIONS (9)
  - Osteitis [None]
  - Deafness [None]
  - Pharyngeal inflammation [None]
  - Eye swelling [None]
  - Odynophagia [None]
  - Discomfort [None]
  - Pain [None]
  - Swelling face [None]
  - Ageusia [None]

NARRATIVE: CASE EVENT DATE: 20200817
